FAERS Safety Report 10075379 (Version 3)
Quarter: 2014Q2

REPORT INFORMATION
  Report Type: Report from Study
  Country: IT (occurrence: IT)
  Receive Date: 20140414
  Receipt Date: 20140421
  Transmission Date: 20141212
  Serious: Yes (Other)
  Sender: FDA-Public Use
  Company Number: IT-UCBSA-105110

PATIENT
  Age: 42 Year
  Sex: Female
  Weight: 46 kg

DRUGS (3)
  1. LACOSAMIDE [Suspect]
     Indication: PARTIAL SEIZURES WITH SECONDARY GENERALISATION
     Dosage: UPTO 400 MG
     Dates: start: 20120403, end: 20120527
  2. TEGRETOL [Concomitant]
     Indication: PARTIAL SEIZURES WITH SECONDARY GENERALISATION
     Dosage: UP TO 1000 MG
     Route: 048
     Dates: start: 20120403, end: 20130430
  3. TOPAMAX [Concomitant]
     Indication: PARTIAL SEIZURES WITH SECONDARY GENERALISATION
     Dosage: UPTO 600 MG
     Route: 048
     Dates: start: 20120403, end: 20130430

REACTIONS (1)
  - Convulsion [Recovered/Resolved]
